FAERS Safety Report 8805440 (Version 1)
Quarter: 2012Q4

REPORT INFORMATION
  Report Type: 
  Country: ZA (occurrence: ZA)
  Receive Date: 20120924
  Receipt Date: 20120924
  Transmission Date: 20130627
  Serious: Yes (Death, Other)
  Sender: FDA-Public Use
  Company Number: PHHO2004ZA13914

PATIENT
  Age: 46 Year
  Sex: Female

DRUGS (6)
  1. GLIVEC [Suspect]
     Indication: CHRONIC MYELOID LEUKAEMIA
     Dosage: 400 mg, QD
     Route: 048
     Dates: start: 20030620, end: 20030826
  2. GLIVEC [Suspect]
     Dosage: 300 mg, QD
     Route: 048
     Dates: start: 20030826, end: 20030902
  3. GLIVEC [Suspect]
     Dosage: 400 mg, QD
     Route: 048
     Dates: start: 20040701, end: 20040715
  4. GLIVEC [Suspect]
     Dosage: 300 mg, QD
     Route: 048
     Dates: start: 20040715, end: 20040729
  5. GLIVEC [Suspect]
     Dosage: 300 mg, QD
     Route: 048
     Dates: start: 20040806, end: 20041001
  6. GLIVEC [Suspect]
     Dates: start: 20040628

REACTIONS (2)
  - Death [Fatal]
  - White blood cell count decreased [Unknown]
